FAERS Safety Report 10330690 (Version 1)
Quarter: 2014Q3

REPORT INFORMATION
  Report Type: Report from Study
  Country: AR (occurrence: AR)
  Receive Date: 20140722
  Receipt Date: 20140722
  Transmission Date: 20150326
  Serious: Yes (Other)
  Sender: FDA-Public Use
  Company Number: PHHY2014AR088889

PATIENT
  Sex: Female

DRUGS (2)
  1. ANTICOAGULANTS [Concomitant]
     Active Substance: UNSPECIFIED INGREDIENT
     Dosage: UNK UKN, UNK
  2. DIOVAN [Suspect]
     Active Substance: VALSARTAN
     Indication: HYPERTENSION
     Dosage: 1 DF (160) QD (AT MORNING)
     Route: 048
     Dates: start: 2006

REACTIONS (5)
  - Ocular vascular disorder [Unknown]
  - Blindness [Unknown]
  - Cataract [Unknown]
  - Vision blurred [Unknown]
  - Maculopathy [Unknown]

NARRATIVE: CASE EVENT DATE: 2010
